FAERS Safety Report 13435427 (Version 6)
Quarter: 2017Q2

REPORT INFORMATION
  Report Type: Spontaneous
  Country: US (occurrence: US)
  Receive Date: 20170413
  Receipt Date: 20170630
  Transmission Date: 20170830
  Serious: Yes (Hospitalization, Other)
  Sender: FDA-Public Use
  Company Number: US-GLAXOSMITHKLINE-US2017GSK053154

PATIENT
  Age: 65 Year
  Sex: Female

DRUGS (8)
  1. FLOLAN [Suspect]
     Active Substance: EPOPROSTENOL SODIUM
     Dosage: 12 DF, CO
     Route: 042
     Dates: start: 20170407
  2. FLOLAN [Suspect]
     Active Substance: EPOPROSTENOL SODIUM
     Dosage: 12 DF, CO
     Route: 042
     Dates: start: 20170407
  3. COUMADIN [Concomitant]
     Active Substance: WARFARIN SODIUM
  4. FLOLAN [Suspect]
     Active Substance: EPOPROSTENOL SODIUM
     Indication: PULMONARY ARTERIAL HYPERTENSION
     Dosage: 12 DF, CO
     Route: 042
     Dates: start: 20170407
  5. OPSUMIT [Concomitant]
     Active Substance: MACITENTAN
  6. SILDENAFIL CITRATE. [Concomitant]
     Active Substance: SILDENAFIL CITRATE
  7. ORENITRAM [Suspect]
     Active Substance: TREPROSTINIL
     Indication: PRODUCT USED FOR UNKNOWN INDICATION
  8. FLOLAN [Suspect]
     Active Substance: EPOPROSTENOL SODIUM
     Indication: PULMONARY ARTERIAL HYPERTENSION
     Dosage: UNK
     Dates: start: 20170407

REACTIONS (11)
  - Cough [Unknown]
  - Throat irritation [Unknown]
  - Cardiac failure [Unknown]
  - Pulmonary oedema [Unknown]
  - Oropharyngeal pain [Unknown]
  - Nausea [Unknown]
  - Ill-defined disorder [Unknown]
  - Peripheral swelling [Unknown]
  - Fluid overload [Unknown]
  - Emergency care [Unknown]
  - Hepatic enzyme increased [Unknown]

NARRATIVE: CASE EVENT DATE: 20170505
